FAERS Safety Report 8825892 (Version 1)
Quarter: 2012Q4

REPORT INFORMATION
  Report Type: 
  Country: US (occurrence: US)
  Receive Date: 20121005
  Receipt Date: 20121005
  Transmission Date: 20130627
  Serious: Yes (Hospitalization)
  Sender: FDA-Public Use
  Company Number: US-ELI_LILLY_AND_COMPANY-US201209007271

PATIENT
  Sex: Female

DRUGS (2)
  1. CYMBALTA [Suspect]
     Indication: MAJOR DEPRESSION
     Dosage: 60 mg, unknown
  2. CYMBALTA [Suspect]
     Dosage: 20 mg, unknown

REACTIONS (5)
  - Abdominal pain upper [Unknown]
  - Dehydration [Unknown]
  - Vomiting [Unknown]
  - Headache [Unknown]
  - Drug withdrawal syndrome [Unknown]
